FAERS Safety Report 21732388 (Version 1)
Quarter: 2022Q4

REPORT INFORMATION
  Report Type: Spontaneous
  Country: US (occurrence: US)
  Receive Date: 20221215
  Receipt Date: 20221215
  Transmission Date: 20230113
  Serious: Yes (Hospitalization)
  Sender: FDA-Public Use
  Company Number: US-JNJFOC-20221224251

PATIENT
  Age: 57 Year
  Sex: Male

DRUGS (3)
  1. SPRAVATO [Suspect]
     Active Substance: ESKETAMINE
     Indication: Product used for unknown indication
  2. SPRAVATO [Suspect]
     Active Substance: ESKETAMINE
     Dates: start: 20221205
  3. SPRAVATO [Suspect]
     Active Substance: ESKETAMINE
     Dates: start: 20221207, end: 20221207

REACTIONS (2)
  - Epistaxis [Recovered/Resolved]
  - COVID-19 [Recovered/Resolved]

NARRATIVE: CASE EVENT DATE: 20220101
